FAERS Safety Report 21071137 (Version 1)
Quarter: 2022Q3

REPORT INFORMATION
  Report Type: Spontaneous
  Country: US (occurrence: None)
  Receive Date: 20220712
  Receipt Date: 20220712
  Transmission Date: 20221026
  Serious: Yes (Other)
  Sender: FDA-Public Use
  Company Number: None

PATIENT
  Sex: Female

DRUGS (24)
  1. HUMIRA [Suspect]
     Active Substance: ADALIMUMAB
     Indication: Ankylosing spondylitis
     Dosage: 40MG/0.4ML??INJECT 1 PEN UNDER THE SKIN (SUBCUTANEOUS INJECTION) EVERY 14 DAYS
     Route: 058
     Dates: start: 20220119
  2. ADDERAL XR CAP [Concomitant]
  3. AIMOVIG [Concomitant]
     Active Substance: ERENUMAB-AOOE
  4. ALBUTEROL AER HFA [Concomitant]
  5. ALLEGRA ALRG TAB [Concomitant]
  6. AMLODIPINE TAB [Concomitant]
  7. AMPHET/DEXTRA CAP [Concomitant]
  8. AMPHET/DEXTR TAB [Concomitant]
  9. BENZONATATE CAP [Concomitant]
  10. BUSPIRONE TAB [Concomitant]
  11. CELECOXIB CAP [Concomitant]
  12. DEXAMETHASON TAB [Concomitant]
  13. EPINEPHRINE INJ [Concomitant]
  14. FLUVOXAMINE TAB [Concomitant]
  15. HUMIRA [Concomitant]
     Active Substance: ADALIMUMAB
  16. HYDROCORT CRE [Concomitant]
  17. KENALOG [Concomitant]
     Active Substance: TRIAMCINOLONE ACETONIDE
  18. MONTELUKAST SODIUM [Concomitant]
     Active Substance: MONTELUKAST SODIUM
  19. OMEPRAZOLE [Concomitant]
  20. ONDANSETRON TAB ODT [Concomitant]
  21. OXYCODONE TAB [Concomitant]
  22. PREDNISONE [Concomitant]
     Active Substance: PREDNISONE
  23. SUCRALFATE TAB [Concomitant]
  24. SUMATRIPTAN INJ [Concomitant]

REACTIONS (2)
  - Gastric bypass [None]
  - Gallbladder operation [None]
